FAERS Safety Report 11694906 (Version 3)
Quarter: 2015Q4

REPORT INFORMATION
  Report Type: Spontaneous
  Country: US (occurrence: US)
  Receive Date: 20151103
  Receipt Date: 20151204
  Transmission Date: 20160304
  Serious: No
  Sender: FDA-Public Use
  Company Number: ALCN2015US006913

PATIENT
  Age: 46 Year
  Sex: Female
  Weight: 66 kg

DRUGS (3)
  1. LYRICA [Concomitant]
     Active Substance: PREGABALIN
     Indication: SEIZURE
     Dosage: 200 MG, TID
     Route: 048
     Dates: start: 2013
  2. PATANOL [Suspect]
     Active Substance: OLOPATADINE HYDROCHLORIDE
     Indication: CONJUNCTIVAL CYST
     Dosage: 1 GTT, BID
     Route: 047
  3. BROMFENAC [Concomitant]
     Active Substance: BROMFENAC SODIUM
     Indication: CONJUNCTIVAL CYST
     Dosage: 1 GTT, BID
     Route: 047

REACTIONS (1)
  - Drug ineffective for unapproved indication [Not Recovered/Not Resolved]

NARRATIVE: CASE EVENT DATE: 20150916
